FAERS Safety Report 22123492 (Version 3)
Quarter: 2023Q2

REPORT INFORMATION
  Report Type: Spontaneous
  Country: DE (occurrence: DE)
  Receive Date: 20230322
  Receipt Date: 20230630
  Transmission Date: 20230721
  Serious: Yes (Other)
  Sender: FDA-Public Use
  Company Number: DE-BEH-2023156808

PATIENT
  Age: 3 Year
  Sex: Male
  Weight: 17.9 kg

DRUGS (3)
  1. PRIVIGEN [Suspect]
     Active Substance: HUMAN IMMUNOGLOBULIN G
     Indication: Kawasaki^s disease
     Dosage: 2G/KG 1X
     Route: 042
     Dates: start: 20230202, end: 20230202
  2. PENICILLIN G [Concomitant]
     Active Substance: PENICILLIN G
     Route: 042
  3. ASPIRIN [Concomitant]
     Active Substance: ASPIRIN

REACTIONS (1)
  - Eyelid ptosis [Recovered/Resolved]

NARRATIVE: CASE EVENT DATE: 20230209
